FAERS Safety Report 4330975-0 (Version None)
Quarter: 2004Q1

REPORT INFORMATION
  Report Type: 
  Country: None (occurrence: None)
  Receive Date: 20040329
  Receipt Date: 20040224
  Transmission Date: 20041129
  Serious: No
  Sender: FDA-Public Use
  Company Number: 7547

PATIENT
  Age: 52 Year
  Sex: Female

DRUGS (5)
  1. LEUCOVORIN CALCIUM [Suspect]
     Indication: RECTAL CANCER
     Dosage: 75 MG PO
     Route: 048
     Dates: start: 20031127, end: 20040120
  2. TEGAFUR [Suspect]
     Indication: RECTAL CANCER
     Dosage: 300 MG PO
     Route: 048
     Dates: start: 20031127, end: 20040120
  3. URACIL [Suspect]
  4. HERBAL EXTRACT [Concomitant]
  5. TRIAZOLAM [Concomitant]

REACTIONS (1)
  - LEUKOENCEPHALOPATHY [None]
